FAERS Safety Report 8277101-3 (Version None)
Quarter: 2012Q2

REPORT INFORMATION
  Report Type: 
  Country: None (occurrence: None)
  Receive Date: 20120412
  Receipt Date: 20120328
  Transmission Date: 20120825
  Serious: No
  Sender: FDA-Public Use
  Company Number: NL-ROCHE-1054211

PATIENT
  Age: 30 Year
  Sex: Female

DRUGS (2)
  1. NUVARING [Concomitant]
     Indication: CONTRACEPTION
  2. ISOTRETINOIN [Suspect]
     Indication: ACNE
     Route: 048
     Dates: end: 20120215

REACTIONS (1)
  - UNINTENDED PREGNANCY [None]
